FAERS Safety Report 6370246-4 (Version None)
Quarter: 2009Q3

REPORT INFORMATION
  Report Type: 
  Country: None (occurrence: None)
  Receive Date: 20090923
  Receipt Date: 20090917
  Transmission Date: 20100115
  Serious: Yes (Death, Hospitalization)
  Sender: FDA-Public Use
  Company Number: FR-WYE-G04453209

PATIENT
  Sex: Female

DRUGS (8)
  1. TAZOCILLINE [Suspect]
     Dosage: UNKNOWN
     Route: 042
     Dates: start: 20090718, end: 20090720
  2. VANCOMYCIN [Suspect]
     Dosage: UNKNOWN
     Route: 042
     Dates: start: 20090718, end: 20090720
  3. XIGRIS [Concomitant]
     Route: 042
     Dates: start: 20090718, end: 20090722
  4. NOREPINEPHRINE BITARTRATE [Suspect]
     Dosage: UNKNOWN
     Route: 042
     Dates: start: 20090718, end: 20090720
  5. EPINEPHRINE [Suspect]
     Dosage: UNKNOWN
     Route: 042
     Dates: start: 20090718, end: 20090720
  6. DOBUTAMINE HCL [Suspect]
     Dosage: UNKNOWN
     Route: 042
     Dates: start: 20090718, end: 20090720
  7. GLYPRESSINE [Suspect]
     Indication: MULTI-ORGAN FAILURE
     Dosage: UNKNOWN
     Route: 042
     Dates: start: 20090718, end: 20090720
  8. GENTALLINE [Suspect]
     Dosage: UNKNOWN
     Route: 042
     Dates: start: 20090718, end: 20090720

REACTIONS (4)
  - COMPARTMENT SYNDROME [None]
  - EXTREMITY NECROSIS [None]
  - PERIPHERAL ISCHAEMIA [None]
  - PURPURA [None]
